FAERS Safety Report 13899328 (Version 6)
Quarter: 2021Q3

REPORT INFORMATION
  Report Type: Report from Study
  Country: US (occurrence: US)
  Receive Date: 20170823
  Receipt Date: 20210729
  Transmission Date: 20211014
  Serious: Yes (Hospitalization)
  Sender: FDA-Public Use
  Company Number: US-JAZZ-2017-US-008119

PATIENT
  Sex: Female

DRUGS (50)
  1. XOPENEX HFA [Concomitant]
     Active Substance: LEVALBUTEROL TARTRATE
  2. DILAUDID [Concomitant]
     Active Substance: HYDROMORPHONE HYDROCHLORIDE
  3. CELEBREX [Concomitant]
     Active Substance: CELECOXIB
  4. FIORICET [Concomitant]
     Active Substance: ACETAMINOPHEN\BUTALBITAL\CAFFEINE
  5. ESOMEPRAZOLE MAGNESIUM. [Concomitant]
     Active Substance: ESOMEPRAZOLE MAGNESIUM
  6. NEUPRO [Concomitant]
     Active Substance: ROTIGOTINE
  7. DEXAMETHASONE. [Concomitant]
     Active Substance: DEXAMETHASONE
  8. UBIDECARENONE. [Concomitant]
     Active Substance: UBIDECARENONE
  9. DEXILANT [Concomitant]
     Active Substance: DEXLANSOPRAZOLE
  10. GABAPENTIN. [Concomitant]
     Active Substance: GABAPENTIN
  11. NASONEX [Concomitant]
     Active Substance: MOMETASONE FUROATE
  12. SPIRONOLACTONE. [Concomitant]
     Active Substance: SPIRONOLACTONE
  13. BOTOX [Concomitant]
     Active Substance: ONABOTULINUMTOXINA
  14. ERGOCALCIFEROL. [Concomitant]
     Active Substance: ERGOCALCIFEROL
  15. PARACETAMOL [Suspect]
     Active Substance: ACETAMINOPHEN
     Indication: PRODUCT USED FOR UNKNOWN INDICATION
  16. VIIBRYD [Concomitant]
     Active Substance: VILAZODONE HYDROCHLORIDE
  17. DONNATAL [Concomitant]
     Active Substance: ATROPINE SULFATE\HYOSCYAMINE SULFATE\PHENOBARBITAL\SCOPOLAMINE HYDROBROMIDE
  18. HYDROCHLOROTHIAZIDE. [Concomitant]
     Active Substance: HYDROCHLOROTHIAZIDE
  19. VAGIFEM [Concomitant]
     Active Substance: ESTRADIOL
  20. VIVELLE?DOT [Concomitant]
     Active Substance: ESTRADIOL
  21. XOLAIR [Concomitant]
     Active Substance: OMALIZUMAB
  22. CYCLOBENZAPRINE. [Concomitant]
     Active Substance: CYCLOBENZAPRINE
  23. METHOCARBAMOL. [Concomitant]
     Active Substance: METHOCARBAMOL
  24. XYREM [Suspect]
     Active Substance: SODIUM OXYBATE
     Indication: NARCOLEPSY
     Dosage: 2.25 GRAM, BID
     Route: 048
     Dates: start: 201506, end: 201507
  25. SINGULAIR [Concomitant]
     Active Substance: MONTELUKAST SODIUM
  26. DOXYCYCLINE HYCLATE. [Concomitant]
     Active Substance: DOXYCYCLINE HYCLATE
  27. BEPREVE [Concomitant]
     Active Substance: BEPOTASTINE BESILATE
  28. FISH OIL [Concomitant]
     Active Substance: FISH OIL
  29. BUSPIRONE HCL [Concomitant]
     Active Substance: BUSPIRONE HYDROCHLORIDE
  30. CRESTOR [Concomitant]
     Active Substance: ROSUVASTATIN CALCIUM
  31. VENTOLIN HFA [Concomitant]
     Active Substance: ALBUTEROL SULFATE
  32. XYREM [Suspect]
     Active Substance: SODIUM OXYBATE
     Indication: CATAPLEXY
     Dosage: DOSE ADJUSTMENT
     Route: 048
     Dates: start: 201507, end: 201507
  33. KETOTIFEN FUMARATE. [Concomitant]
     Active Substance: KETOTIFEN FUMARATE
  34. ADDERALL [Concomitant]
     Active Substance: AMPHETAMINE ASPARTATE\AMPHETAMINE SULFATE\DEXTROAMPHETAMINE SACCHARATE\DEXTROAMPHETAMINE SULFATE
  35. CLONAZEPAM. [Concomitant]
     Active Substance: CLONAZEPAM
  36. DULERA [Concomitant]
     Active Substance: FORMOTEROL FUMARATE DIHYDRATE\MOMETASONE FUROATE
  37. LEVOCETIRIZINE [Concomitant]
     Active Substance: LEVOCETIRIZINE
  38. XYREM [Suspect]
     Active Substance: SODIUM OXYBATE
     Dosage: 4.5 GRAM, BID
     Route: 048
     Dates: start: 201507
  39. METFORMIN HCL [Concomitant]
     Active Substance: METFORMIN HYDROCHLORIDE
  40. FENTANYL. [Concomitant]
     Active Substance: FENTANYL
  41. FERROUS SULFATE. [Concomitant]
     Active Substance: FERROUS SULFATE
  42. HORIZANT [Concomitant]
     Active Substance: GABAPENTIN ENACARBIL
  43. HYDROXYZINE HCL [Concomitant]
     Active Substance: HYDROXYZINE HYDROCHLORIDE
  44. METAXALONE. [Concomitant]
     Active Substance: METAXALONE
  45. MAGNESIUM GLUCEPTATE [Concomitant]
     Active Substance: MAGNESIUM GLUCEPTATE
  46. FLUCONAZOLE. [Concomitant]
     Active Substance: FLUCONAZOLE
  47. MODAFINIL. [Concomitant]
     Active Substance: MODAFINIL
  48. PREDNISONE. [Concomitant]
     Active Substance: PREDNISONE
  49. RITALIN [Concomitant]
     Active Substance: METHYLPHENIDATE HYDROCHLORIDE
  50. NORCO [Concomitant]
     Active Substance: ACETAMINOPHEN\HYDROCODONE BITARTRATE

REACTIONS (2)
  - Medication overuse headache [Unknown]
  - Status migrainosus [Recovering/Resolving]
